FAERS Safety Report 10847170 (Version 1)
Quarter: 2015Q1

REPORT INFORMATION
  Report Type: Spontaneous
  Country: US (occurrence: US)
  Receive Date: 20150220
  Receipt Date: 20150220
  Transmission Date: 20150721
  Serious: Yes (Hospitalization, Other)
  Sender: FDA-Public Use
  Company Number: PHHY2015US016939

PATIENT
  Age: 62 Year
  Sex: Male

DRUGS (4)
  1. PROMETHAZINE [Suspect]
     Active Substance: PROMETHAZINE\PROMETHAZINE HYDROCHLORIDE
     Indication: VOMITING
  2. PROMETHAZINE [Suspect]
     Active Substance: PROMETHAZINE\PROMETHAZINE HYDROCHLORIDE
     Indication: ARTHROPOD BITE
  3. PROMETHAZINE [Suspect]
     Active Substance: PROMETHAZINE\PROMETHAZINE HYDROCHLORIDE
     Indication: NAUSEA
     Route: 042
  4. PROMETHAZINE [Suspect]
     Active Substance: PROMETHAZINE\PROMETHAZINE HYDROCHLORIDE
     Indication: PYREXIA

REACTIONS (15)
  - Nystagmus [Recovering/Resolving]
  - Mydriasis [Recovered/Resolved]
  - Overdose [Unknown]
  - Disorientation [Recovered/Resolved]
  - Agitation [Recovered/Resolved]
  - Cerebellar syndrome [Recovered/Resolved]
  - Leukocytosis [Recovered/Resolved]
  - Ataxia [Recovering/Resolving]
  - Dyskinesia [Recovered/Resolved]
  - Blood creatine phosphokinase increased [Recovered/Resolved]
  - Dysarthria [Recovered/Resolved]
  - Extensor plantar response [Recovered/Resolved]
  - Pyrexia [Recovered/Resolved]
  - Hallucination, visual [Recovered/Resolved]
  - Confusional state [Recovered/Resolved]
